FAERS Safety Report 4333243-6 (Version None)
Quarter: 2004Q2

REPORT INFORMATION
  Report Type: 
  Country: None (occurrence: None)
  Receive Date: 20040405
  Receipt Date: 20040325
  Transmission Date: 20050107
  Serious: Yes (Other)
  Sender: FDA-Public Use
  Company Number: 2004UW05928

PATIENT

DRUGS (3)
  1. SEROQUEL [Suspect]
  2. DEPAKOTE [Suspect]
  3. CLOZARIL [Concomitant]

REACTIONS (1)
  - WHITE BLOOD CELL COUNT DECREASED [None]
